FAERS Safety Report 4594259-8 (Version None)
Quarter: 2005Q1

REPORT INFORMATION
  Report Type: 
  Country: None (occurrence: None)
  Receive Date: 20050301
  Receipt Date: 20040818
  Transmission Date: 20050727
  Serious: No
  Sender: FDA-Public Use
  Company Number: US-GLAXOSMITHKLINE-A0522755A

PATIENT
  Sex: Female

DRUGS (1)
  1. VALTREX [Suspect]
     Indication: HERPES VIRUS INFECTION
     Route: 048
     Dates: start: 20040811

REACTIONS (3)
  - CHRONIC FATIGUE SYNDROME [None]
  - FIBROMYALGIA [None]
  - THERAPEUTIC RESPONSE UNEXPECTED [None]
